FAERS Safety Report 24393281 (Version 1)
Quarter: 2024Q4

REPORT INFORMATION
  Report Type: Spontaneous
  Country: US (occurrence: US)
  Receive Date: 20241003
  Receipt Date: 20241003
  Transmission Date: 20250115
  Serious: No
  Sender: FRESENIUS KABI
  Company Number: US-FreseniusKabi-FK202414409

PATIENT
  Sex: Female

DRUGS (8)
  1. DIPHENHYDRAMINE [Suspect]
     Active Substance: DIPHENHYDRAMINE
     Indication: Premedication
  2. PACLITAXEL [Suspect]
     Active Substance: PACLITAXEL
     Indication: Cervix carcinoma
     Dosage: 3 CYCLES
  3. FAMOTIDINE [Suspect]
     Active Substance: FAMOTIDINE
     Indication: Premedication
  4. DEXAMETHASONE [Suspect]
     Active Substance: DEXAMETHASONE
     Indication: Premedication
  5. ZIRABEV [Concomitant]
     Active Substance: BEVACIZUMAB-BVZR
     Indication: Cervix carcinoma
     Dosage: 400 MG/16ML?ROUTE: INTRAVENOUS (NOT OTHERWISE SPECIFIED)?3 CYCLES
  6. CARBOPLATIN [Concomitant]
     Active Substance: CARBOPLATIN
     Indication: Cervix carcinoma
     Dosage: 3 CYCLES
  7. PEMBROLIZUMAB [Concomitant]
     Active Substance: PEMBROLIZUMAB
     Indication: Cervix carcinoma
     Dosage: 3 CYCLES?ALSO REPORTED AS KEYTRUDA
  8. DOCETAXEL [Concomitant]
     Active Substance: DOCETAXEL
     Indication: Cervix carcinoma

REACTIONS (3)
  - Adverse drug reaction [Unknown]
  - Drug ineffective for unapproved indication [Unknown]
  - Off label use [Unknown]
